FAERS Safety Report 7052929-6 (Version None)
Quarter: 2010Q4

REPORT INFORMATION
  Report Type: 
  Country: None (occurrence: None)
  Receive Date: 20101020
  Receipt Date: 20101012
  Transmission Date: 20110411
  Serious: No
  Sender: FDA-Public Use
  Company Number: US-BIOGENIDEC-2010BI030841

PATIENT
  Age: 50 Year
  Sex: Female

DRUGS (3)
  1. TYSABRI [Suspect]
     Indication: MULTIPLE SCLEROSIS
     Route: 042
     Dates: start: 20080701, end: 20080815
  2. TYSABRI [Suspect]
     Route: 042
     Dates: start: 20100805
  3. AVONEX [Concomitant]
     Indication: MULTIPLE SCLEROSIS
     Route: 030

REACTIONS (7)
  - BACK PAIN [None]
  - CHEST PAIN [None]
  - HEART RATE DECREASED [None]
  - HOT FLUSH [None]
  - MUSCLE CONTRACTIONS INVOLUNTARY [None]
  - NAUSEA [None]
  - PAIN IN EXTREMITY [None]
